FAERS Safety Report 7583575-3 (Version None)
Quarter: 2011Q2

REPORT INFORMATION
  Report Type: 
  Country: None (occurrence: None)
  Receive Date: 20110630
  Receipt Date: 20110609
  Transmission Date: 20111010
  Serious: Yes (Hospitalization)
  Sender: FDA-Public Use
  Company Number: A0806063A

PATIENT
  Age: 65 Year
  Sex: Female
  Weight: 70.9 kg

DRUGS (3)
  1. AVANDIA [Suspect]
     Indication: DIABETES MELLITUS
     Dosage: 4MG PER DAY
     Route: 048
     Dates: start: 20050527, end: 20070731
  2. AVANDAMET [Suspect]
     Indication: DIABETES MELLITUS
     Route: 048
     Dates: start: 20050502, end: 20050527
  3. HYZAAR [Concomitant]

REACTIONS (2)
  - MACULAR DEGENERATION [None]
  - MONOPLEGIA [None]
